FAERS Safety Report 6546055-X (Version None)
Quarter: 2010Q1

REPORT INFORMATION
  Report Type: 
  Country: None (occurrence: None)
  Receive Date: 20100119
  Receipt Date: 20100104
  Transmission Date: 20100710
  Serious: Yes (Death, Hospitalization)
  Sender: FDA-Public Use
  Company Number: 2009AC000246

PATIENT
  Age: 62 Year
  Sex: Male

DRUGS (16)
  1. DIGOXIN [Suspect]
     Indication: ATRIAL FIBRILLATION
     Dosage: 0.25 MG; QD; PO
     Route: 048
  2. DIGOXIN [Suspect]
     Indication: CARDIAC FAILURE CONGESTIVE
     Dosage: 0.25 MG; QD; PO
     Route: 048
  3. LASIX [Concomitant]
  4. METFORMIN HCL [Concomitant]
  5. BENICAR [Concomitant]
  6. HYDRALAZINE [Concomitant]
  7. METOPROLOL [Concomitant]
  8. ASPIRIN [Concomitant]
  9. VYTORIN [Concomitant]
  10. ZOCOR [Concomitant]
  11. HYDRALAZINE [Concomitant]
  12. FUROSEMIDE [Concomitant]
  13. METOPROLOL [Concomitant]
  14. TOPROL-XL [Concomitant]
  15. VYTORIN [Concomitant]
  16. CEPHALEXIN [Concomitant]

REACTIONS (20)
  - ANHEDONIA [None]
  - ANOXIC ENCEPHALOPATHY [None]
  - ANXIETY [None]
  - CARDIAC ARREST [None]
  - CARDIO-RESPIRATORY ARREST [None]
  - CORONARY ARTERY DISEASE [None]
  - CORONARY ARTERY OCCLUSION [None]
  - COUGH [None]
  - ECONOMIC PROBLEM [None]
  - FATIGUE [None]
  - HYPERCHOLESTEROLAEMIA [None]
  - ILL-DEFINED DISORDER [None]
  - MULTIPLE INJURIES [None]
  - PAIN [None]
  - RESPIRATORY FAILURE [None]
  - THERAPEUTIC AGENT TOXICITY [None]
  - TROPONIN INCREASED [None]
  - TYPE 2 DIABETES MELLITUS [None]
  - VENTRICULAR FIBRILLATION [None]
  - VENTRICULAR TACHYCARDIA [None]
